FAERS Safety Report 11537541 (Version 1)
Quarter: 2015Q3

REPORT INFORMATION
  Report Type: Report from Study
  Country: EG (occurrence: EG)
  Receive Date: 20150922
  Receipt Date: 20150922
  Transmission Date: 20151125
  Serious: Yes (Death)
  Sender: FDA-Public Use
  Company Number: EG-SA-2015SA143964

PATIENT
  Age: 63 Year
  Sex: Female

DRUGS (1)
  1. INSULIN GLARGINE [Suspect]
     Active Substance: INSULIN GLARGINE
     Indication: TYPE 2 DIABETES MELLITUS
     Route: 058
     Dates: start: 20130319, end: 20150619

REACTIONS (4)
  - Pneumonitis [Fatal]
  - Myocardial infarction [Fatal]
  - Diabetes mellitus [Fatal]
  - Renal failure [Fatal]

NARRATIVE: CASE EVENT DATE: 20150619
